FAERS Safety Report 21290127 (Version 1)
Quarter: 2022Q3

REPORT INFORMATION
  Report Type: Spontaneous
  Country: GB (occurrence: GB)
  Receive Date: 20220902
  Receipt Date: 20220902
  Transmission Date: 20221026
  Serious: Yes (Other)
  Sender: FDA-Public Use
  Company Number: GB-VERTEX PHARMACEUTICALS-2022-012922

PATIENT
  Age: 30 Year
  Sex: Female

DRUGS (8)
  1. ELEXACAFTOR\IVACAFTOR\TEZACAFTOR [Suspect]
     Active Substance: ELEXACAFTOR\IVACAFTOR\TEZACAFTOR
     Indication: Cystic fibrosis
     Dosage: FULL DOSE, 2 TABLETS, QD
     Route: 048
     Dates: start: 20200930, end: 20201001
  2. ELEXACAFTOR\IVACAFTOR\TEZACAFTOR [Suspect]
     Active Substance: ELEXACAFTOR\IVACAFTOR\TEZACAFTOR
     Dosage: UNK FREQ
     Route: 048
     Dates: start: 202012, end: 20210115
  3. ELEXACAFTOR\IVACAFTOR\TEZACAFTOR [Suspect]
     Active Substance: ELEXACAFTOR\IVACAFTOR\TEZACAFTOR
     Dosage: 2 TABLETS, QD
     Route: 048
     Dates: start: 20210125, end: 20210514
  4. ELEXACAFTOR\IVACAFTOR\TEZACAFTOR [Suspect]
     Active Substance: ELEXACAFTOR\IVACAFTOR\TEZACAFTOR
     Dosage: UNK FREQ
     Route: 048
  5. KALYDECO [Suspect]
     Active Substance: IVACAFTOR
     Indication: Cystic fibrosis
     Dosage: FULL DOSE, 2 TABLETS QD
     Route: 048
     Dates: start: 20200930, end: 20201001
  6. KALYDECO [Suspect]
     Active Substance: IVACAFTOR
     Dosage: UNK FREQ
     Route: 048
     Dates: start: 202012, end: 20210115
  7. KALYDECO [Suspect]
     Active Substance: IVACAFTOR
     Dosage: 2 TABLETS, QD
     Route: 048
     Dates: start: 20210125, end: 20210514
  8. KALYDECO [Suspect]
     Active Substance: IVACAFTOR
     Dosage: UNK
     Route: 048

REACTIONS (2)
  - Abortion spontaneous [Recovered/Resolved]
  - Exposure during pregnancy [Unknown]

NARRATIVE: CASE EVENT DATE: 20210125
